FAERS Safety Report 23860156 (Version 2)
Quarter: 2024Q2

REPORT INFORMATION
  Report Type: Spontaneous
  Country: DE (occurrence: DE)
  Receive Date: 20240515
  Receipt Date: 20240626
  Transmission Date: 20240716
  Serious: Yes (Hospitalization, Other)
  Sender: FDA-Public Use
  Company Number: DE-BoehringerIngelheim-2024-BI-027674

PATIENT
  Age: 77 Year
  Sex: Male

DRUGS (12)
  1. JARDIANCE [Suspect]
     Active Substance: EMPAGLIFLOZIN
     Indication: Cardiac failure
     Dosage: FORM STRENGTH: 10 MILLIGRAM?1-0-0-0
     Route: 048
     Dates: start: 20230126
  2. INEGY 10mg/40 mg Tabletten [Concomitant]
     Indication: Product used for unknown indication
     Dosage: 0-0-1-0
  3. TRAZODONE HYDROCHLORIDE [Concomitant]
     Active Substance: TRAZODONE HYDROCHLORIDE
     Indication: Product used for unknown indication
     Dosage: 0-0-0-1.5
  4. Candesartan Heumann 16 mg Tabletten HEUNET [Concomitant]
     Indication: Product used for unknown indication
     Dosage: 1-0-1-0
  5. Omeprazol - 1 A Pharma 40mg magensaftres. Hart... [Concomitant]
     Indication: Product used for unknown indication
     Dosage: 0-0-1-0
  6. Eliquis 5mg Filmtabletten [Concomitant]
     Indication: Product used for unknown indication
     Dosage: 1-0-1-0
  7. Torasemid AL 10 mg Tabletten [Concomitant]
     Indication: Product used for unknown indication
     Dosage: 0.5-0-0-0
  8. Novaminsulfon  500 mg tbl. [Concomitant]
     Indication: Product used for unknown indication
     Dosage: 1-1-1-1 AS NECESSARY
  9. NITROLINGUAL [Concomitant]
     Active Substance: NITROGLYCERIN
     Indication: Product used for unknown indication
     Dosage: FORM OF ADMIN: SPRAY
  10. Ranexa 375 mg Retardtabletten [Concomitant]
     Indication: Product used for unknown indication
     Dates: end: 202401
  11. Innohep 8.000 [Concomitant]
     Indication: Product used for unknown indication
     Dosage: 1-0-0-0
  12. Bifiteral Sirup [Concomitant]
     Indication: Product used for unknown indication
     Dosage: 10ML-0-0-0
     Dates: start: 20240503

REACTIONS (2)
  - Prostate cancer [Recovered/Resolved]
  - Blood creatinine increased [Unknown]
